FAERS Safety Report 4542327-9 (Version None)
Quarter: 2004Q4

REPORT INFORMATION
  Report Type: 
  Country: None (occurrence: None)
  Receive Date: 20041227
  Receipt Date: 20041123
  Transmission Date: 20050328
  Serious: Yes (Other)
  Sender: FDA-Public Use
  Company Number: 2004099122

PATIENT
  Sex: Female

DRUGS (4)
  1. CELEBREX [Suspect]
     Indication: PAIN
     Dosage: 200 MG (200 MG, 1 IN 1 D), ORAL
     Route: 048
  2. CELEBREX [Suspect]
     Indication: PERIARTHRITIS
     Dosage: 200 MG (200 MG, 1 IN 1 D), ORAL
     Route: 048
  3. CORTISONE (CORTISONE) [Suspect]
     Indication: PAIN
     Dosage: INTRAVENOUS
     Route: 042
     Dates: start: 20041101
  4. ACETAMINOPHEN [Concomitant]

REACTIONS (17)
  - ABNORMAL FAECES [None]
  - ARTHRALGIA [None]
  - ARTHRITIS [None]
  - AXILLARY PAIN [None]
  - BENIGN NEOPLASM [None]
  - DIZZINESS [None]
  - ERYTHEMA [None]
  - EXOSTOSIS [None]
  - FAECES DISCOLOURED [None]
  - HOT FLUSH [None]
  - INFLAMMATION [None]
  - JOINT ADHESION [None]
  - JOINT EFFUSION [None]
  - LIVER DISORDER [None]
  - NEPHROLITHIASIS [None]
  - PAIN IN EXTREMITY [None]
  - THERAPEUTIC RESPONSE DECREASED [None]
